FAERS Safety Report 6070798-8 (Version None)
Quarter: 2009Q1

REPORT INFORMATION
  Report Type: 
  Country: None (occurrence: None)
  Receive Date: 20090209
  Receipt Date: 20080707
  Transmission Date: 20090719
  Serious: No
  Sender: FDA-Public Use
  Company Number: A0736269A

PATIENT
  Age: 38 Year
  Sex: Female

DRUGS (2)
  1. PAXIL [Suspect]
     Indication: DEPRESSION
     Dosage: 30MG PER DAY
     Route: 048
     Dates: start: 20060101, end: 20080626
  2. CLARITIN [Concomitant]

REACTIONS (4)
  - DIZZINESS [None]
  - MALAISE [None]
  - NERVOUSNESS [None]
  - WITHDRAWAL SYNDROME [None]
